FAERS Safety Report 9457183 (Version 1)
Quarter: 2013Q3

REPORT INFORMATION
  Report Type: Spontaneous
  Country: ZA (occurrence: ZA)
  Receive Date: 20130814
  Receipt Date: 20130814
  Transmission Date: 20140515
  Serious: Yes (Other)
  Sender: FDA-Public Use
  Company Number: ZA-ABBOTT-13X-143-1132071-00

PATIENT
  Age: 33 Year
  Sex: Male

DRUGS (8)
  1. EPILIM [Suspect]
     Indication: PRODUCT USED FOR UNKNOWN INDICATION
     Route: 065
  2. EPILIM [Suspect]
     Route: 065
  3. EPILIM [Suspect]
     Route: 065
  4. EPILIM [Suspect]
     Route: 065
  5. EPILIM [Suspect]
     Route: 065
  6. EPILIM [Suspect]
     Route: 065
  7. LAMICTIN [Concomitant]
     Indication: PRODUCT USED FOR UNKNOWN INDICATION
  8. BETANOID [Concomitant]
     Indication: PRODUCT USED FOR UNKNOWN INDICATION

REACTIONS (2)
  - Convulsion [Unknown]
  - Inappropriate schedule of drug administration [Unknown]
